FAERS Safety Report 6526356-1 (Version None)
Quarter: 2010Q1

REPORT INFORMATION
  Report Type: 
  Country: None (occurrence: None)
  Receive Date: 20100105
  Receipt Date: 20091222
  Transmission Date: 20100710
  Serious: Yes (Other)
  Sender: FDA-Public Use
  Company Number: IT-RANBAXY-2009RR-30216

PATIENT
  Age: 76 Year
  Sex: Female

DRUGS (1)
  1. SERTRALINE HCL [Suspect]
     Indication: DEPRESSED MOOD

REACTIONS (2)
  - EOSINOPHILIC PNEUMONIA [None]
  - RESPIRATORY FAILURE [None]
